FAERS Safety Report 6047023-7 (Version None)
Quarter: 2009Q1

REPORT INFORMATION
  Report Type: 
  Country: None (occurrence: None)
  Receive Date: 20090122
  Receipt Date: 20090115
  Transmission Date: 20090719
  Serious: Yes (Hospitalization)
  Sender: FDA-Public Use
  Company Number: GB-WYE-G02945909

PATIENT
  Sex: Female

DRUGS (13)
  1. ACETAMINOPHEN [Suspect]
     Indication: MIGRAINE
     Dosage: UNKNOWN
     Route: 048
  2. CALCICHEW [Suspect]
     Indication: OSTEOARTHRITIS
     Route: 048
  3. CARBAMAZEPINE [Suspect]
     Indication: EPILEPSY
     Route: 048
  4. CODEINE PHOSPHATE [Suspect]
     Indication: MIGRAINE
     Dosage: UNKNOWN
     Route: 048
  5. GAVISCON [Suspect]
     Indication: ILL-DEFINED DISORDER
     Dosage: UNKNOWN
     Route: 048
  6. PANTOPRAZOLE SODIUM [Suspect]
     Indication: ILL-DEFINED DISORDER
     Dosage: UNKNOWN
     Route: 048
  7. SERETIDE [Suspect]
     Indication: ASTHMA
     Route: 055
  8. LEVOTHYROXINE [Suspect]
     Indication: HYPOTHYROIDISM
     Route: 048
  9. VENTOLIN [Suspect]
     Indication: ASTHMA
     Dosage: UNKNOWN
     Route: 055
  10. WARFARIN [Suspect]
     Indication: DEEP VEIN THROMBOSIS
     Dosage: DOSE UNKNOWN, FREQUENCY ONCE DAILY
     Route: 048
  11. ZOLMITRIPTAN [Suspect]
     Indication: MIGRAINE
     Dosage: UNKNOWN
     Route: 048
  12. ALENDRONIC ACID [Suspect]
     Indication: OSTEOARTHRITIS
     Dosage: UNKNOWN
     Route: 048
  13. RISEDRONATE [Suspect]
     Indication: OSTEOARTHRITIS
     Route: 048

REACTIONS (1)
  - CEREBROVASCULAR ACCIDENT [None]
